FAERS Safety Report 10502666 (Version 1)
Quarter: 2014Q4

REPORT INFORMATION
  Report Type: Report from Study
  Country: JP (occurrence: JP)
  Receive Date: 20141007
  Receipt Date: 20141007
  Transmission Date: 20150528
  Serious: Yes (Death)
  Sender: FDA-Public Use
  Company Number: JP-OTSUKA-JP-2014-17959

PATIENT

DRUGS (2)
  1. SAMSCA [Suspect]
     Active Substance: TOLVAPTAN
     Indication: OEDEMA DUE TO CARDIAC DISEASE
     Dosage: 3.75 MG MILLIGRAM(S), QAM
     Route: 048
     Dates: start: 20140909, end: 20140918
  2. TAKEPRON [Concomitant]
     Active Substance: LANSOPRAZOLE
     Indication: PROPHYLAXIS AGAINST GASTROINTESTINAL ULCER
     Dosage: 15 MG MILLIGRAM(S), DAILY DOSE
     Route: 048
     Dates: start: 20140912, end: 20140918

REACTIONS (1)
  - Death [Fatal]
